FAERS Safety Report 15210750 (Version 1)
Quarter: 2018Q3

REPORT INFORMATION
  Report Type: Spontaneous
  Country: GB (occurrence: GB)
  Receive Date: 20180728
  Receipt Date: 20180728
  Transmission Date: 20181010
  Serious: Yes (Disabling, Other)
  Sender: FDA-Public Use
  Company Number: GB-TEVA-2018-GB-931349

PATIENT
  Age: 83 Year
  Sex: Male
  Weight: 103 kg

DRUGS (20)
  1. ACETYLSALICYLIC ACID [Concomitant]
     Active Substance: ASPIRIN
     Dosage: 1 DOSAGE FORMS DAILY;
     Dates: start: 20170807
  2. LOSARTAN. [Concomitant]
     Active Substance: LOSARTAN
     Dates: start: 20170807, end: 20180425
  3. SYMBICORT [Concomitant]
     Active Substance: BUDESONIDE\FORMOTEROL FUMARATE DIHYDRATE
     Dosage: 6 DOSAGE FORMS DAILY; PUFFS
     Dates: start: 20170807
  4. DOXAZOSIN [Concomitant]
     Active Substance: DOXAZOSIN\DOXAZOSIN MESYLATE
     Dosage: 1 DOSAGE FORMS DAILY;
     Route: 065
     Dates: start: 20170807
  5. INDAPAMIDE. [Concomitant]
     Active Substance: INDAPAMIDE
     Dosage: 1 DOSAGE FORMS DAILY; MORNING
     Dates: start: 20180115
  6. XALATAN [Concomitant]
     Active Substance: LATANOPROST
     Dosage: 1 DOSAGE FORMS DAILY; BOTH EYES AT NIGHT
     Dates: start: 20170807, end: 20180425
  7. VENTOLIN [Concomitant]
     Active Substance: ALBUTEROL SULFATE
     Dosage: PUFFS, FOUR TIMES A DAY
     Dates: start: 20170807
  8. NITROFURANTOIN. [Concomitant]
     Active Substance: NITROFURANTOIN
     Dosage: 2 DOSAGE FORMS DAILY;
     Dates: start: 20180406, end: 20180413
  9. SYSTANE (HYPROMELLOSE 2910 (4000 MPA.S)) [Concomitant]
     Active Substance: HYPROMELLOSE 2910 (4000 MPA.S)
     Dosage: 4 DOSAGE FORMS DAILY; BOTH EYES
     Dates: start: 20170807, end: 20180425
  10. SALBUTAMOL [Concomitant]
     Active Substance: ALBUTEROL
     Dosage: 3?4 TIMES A DAY
     Route: 055
     Dates: start: 20170807
  11. ALENDRONIC ACID [Concomitant]
     Active Substance: ALENDRONIC ACID
     Dates: start: 20170807
  12. ATORVASTATIN [Concomitant]
     Active Substance: ATORVASTATIN
     Dosage: 1 DOSAGE FORMS DAILY;
     Dates: start: 20170807
  13. GABAPENTIN. [Suspect]
     Active Substance: GABAPENTIN
     Route: 065
     Dates: start: 20180625
  14. NASACORT [Concomitant]
     Active Substance: TRIAMCINOLONE ACETONIDE
     Dosage: USE AS DIRECTED
     Route: 065
     Dates: start: 20180503, end: 20180510
  15. IBUPROFEN. [Concomitant]
     Active Substance: IBUPROFEN
     Dosage: APPLY 3?4 TIMES/DAY
     Dates: start: 20180625
  16. PREDNISOLONE. [Concomitant]
     Active Substance: PREDNISOLONE
     Dosage: USE AS DIRECTED
     Dates: start: 20180625
  17. LEVOTHYROXINE. [Concomitant]
     Active Substance: LEVOTHYROXINE
     Dosage: 1 DOSAGE FORMS DAILY; MORNING
     Dates: start: 20170807
  18. BRINZOLAMIDE [Concomitant]
     Active Substance: BRINZOLAMIDE
     Dosage: 2 GTT DAILY; BOTH EYES
     Route: 047
     Dates: start: 20170807, end: 20180425
  19. CALCICHEW D3 [Concomitant]
     Active Substance: CALCIUM\CHOLECALCIFEROL
     Dosage: 2 DOSAGE FORMS DAILY; AT NIGHT
     Dates: start: 20170807
  20. UNIPHYLLIN [Concomitant]
     Active Substance: THEOPHYLLINE ANHYDROUS
     Dates: start: 20170807, end: 20180425

REACTIONS (1)
  - Asthma [Recovered/Resolved]

NARRATIVE: CASE EVENT DATE: 20180625
